FAERS Safety Report 13575593 (Version 1)
Quarter: 2017Q2

REPORT INFORMATION
  Report Type: Spontaneous
  Country: US (occurrence: US)
  Receive Date: 20170523
  Receipt Date: 20170523
  Transmission Date: 20170830
  Serious: Yes (Other)
  Sender: FDA-Public Use
  Company Number: None

PATIENT
  Age: 37 Year
  Sex: Female
  Weight: 81 kg

DRUGS (19)
  1. PRISTIQ EXTENDED-RELEASE [Concomitant]
     Active Substance: DESVENLAFAXINE SUCCINATE
  2. GABAPENTIN. [Concomitant]
     Active Substance: GABAPENTIN
  3. CAMBIA [Concomitant]
     Active Substance: DICLOFENAC POTASSIUM
  4. ACANYA [Concomitant]
     Active Substance: BENZOYL PEROXIDE\CLINDAMYCIN PHOSPHATE
  5. VITAMIN A (PURE ENCAPSULATIONS) [Concomitant]
  6. NARATRIPTAN [Concomitant]
     Active Substance: NARATRIPTAN HYDROCHLORIDE
  7. FLINTSTONES TODDLER GUMMIES [Concomitant]
  8. DESVENLAFAXINE 100 MG ER TABLETS [Suspect]
     Active Substance: DESVENLAFAXINE
     Indication: DEPRESSION
     Dosage: ?          QUANTITY:1 TABLET(S);?
     Route: 048
     Dates: start: 20170501, end: 20170508
  9. ADAPALENE. [Concomitant]
     Active Substance: ADAPALENE
  10. SPRIX [Concomitant]
     Active Substance: KETOROLAC TROMETHAMINE
  11. TRAZODONE [Concomitant]
     Active Substance: TRAZODONE HYDROCHLORIDE
  12. IPRATROPIUM [Concomitant]
     Active Substance: IPRATROPIUM
  13. VITAMIN D3 (NORDIC NATURALS) [Concomitant]
  14. WP THYROID [Concomitant]
     Active Substance: THYROID, PORCINE
  15. SYNTHROID [Concomitant]
     Active Substance: LEVOTHYROXINE SODIUM
  16. WELLBUTRIN XL [Concomitant]
     Active Substance: BUPROPION HYDROCHLORIDE
  17. LAMOTRIGINE. [Concomitant]
     Active Substance: LAMOTRIGINE
  18. PURE GENOMICS MULTIVITAMIN (PURE ENCAPSULATIONS) [Concomitant]
  19. OMEGA 3 (NORDIC NATURALS) [Concomitant]

REACTIONS (2)
  - Withdrawal syndrome [None]
  - Migraine [None]

NARRATIVE: CASE EVENT DATE: 20170501
